FAERS Safety Report 10155462 (Version 1)
Quarter: 2014Q2

REPORT INFORMATION
  Report Type: Spontaneous
  Country: US (occurrence: None)
  Receive Date: 20140421
  Receipt Date: 20140421
  Transmission Date: 20141212
  Serious: No
  Sender: FDA-Public Use
  Company Number: AEGR000066

PATIENT
  Age: 40 Year
  Sex: Male
  Weight: 98 kg

DRUGS (8)
  1. JUXTAPID (LOMITAPIDE) CAPSULE, 5MG [Suspect]
     Indication: TYPE IIA HYPERLIPIDAEMIA
     Route: 048
     Dates: start: 20130529
  2. LIPITOR (ATORVASTATIN CALCIUM) TABLET [Concomitant]
  3. LISINOPRIL (LISINOPRIL) TABLET [Concomitant]
  4. PLAVIX (CLOPIDOGREL BISULFATE) TABLET? [Concomitant]
  5. ASA (ACETYLSALICYLIC ACID) TABLET [Concomitant]
  6. PRILOSEC (OMEPRZOLE) CAPSULE [Concomitant]
  7. COREG (CARVEDILOL) [Concomitant]
  8. ZETIA (EZETIMIBE) TABLET [Concomitant]

REACTIONS (2)
  - Diarrhoea [None]
  - Nausea [None]
